FAERS Safety Report 13282302 (Version 1)
Quarter: 2017Q1

REPORT INFORMATION
  Report Type: Spontaneous
  Country: EG (occurrence: EG)
  Receive Date: 20170301
  Receipt Date: 20170301
  Transmission Date: 20170428
  Serious: Yes (Death)
  Sender: FDA-Public Use
  Company Number: PHHY2017EG030893

PATIENT
  Age: 27 Year
  Sex: Male

DRUGS (2)
  1. TEGRETOL [Suspect]
     Active Substance: CARBAMAZEPINE
     Indication: ABDOMINAL PAIN UPPER
     Dosage: 400 OT, TID
     Route: 065
  2. TEGRETOL [Suspect]
     Active Substance: CARBAMAZEPINE
     Dosage: 200 OT, BID
     Route: 065

REACTIONS (2)
  - Prescribed overdose [Fatal]
  - Product use issue [Unknown]
